FAERS Safety Report 12581519 (Version 1)
Quarter: 2016Q3

REPORT INFORMATION
  Report Type: Spontaneous
  Country: US (occurrence: US)
  Receive Date: 20160721
  Receipt Date: 20160721
  Transmission Date: 20161109
  Serious: Yes (Hospitalization)
  Sender: FDA-Public Use
  Company Number: US-BAUSCH-BL-2016-017294

PATIENT
  Sex: Female

DRUGS (1)
  1. XENAZINE [Suspect]
     Active Substance: TETRABENAZINE
     Indication: HUNTINGTON^S DISEASE
     Dosage: 12.5MG, 1 TABLET IN THE MORNING,1 TABLET AT NOON, AND 2 TABLETS AT NIGHT
     Route: 048
     Dates: start: 201410

REACTIONS (1)
  - Hospitalisation [Unknown]
